FAERS Safety Report 8015819-8 (Version None)
Quarter: 2011Q4

REPORT INFORMATION
  Report Type: 
  Country: None (occurrence: None)
  Receive Date: 20111230
  Receipt Date: 20111228
  Transmission Date: 20120403
  Serious: Yes (Hospitalization)
  Sender: FDA-Public Use
  Company Number: CA-ROCHE-791811

PATIENT
  Sex: Male

DRUGS (1)
  1. RITUXAN [Suspect]
     Indication: MANTLE CELL LYMPHOMA
     Dosage: DOSE, ROUTE AND FREQUENCY NOT REPORTED
     Route: 042
     Dates: start: 20080319, end: 20080818

REACTIONS (1)
  - MAJOR DEPRESSION [None]
